FAERS Safety Report 9797754 (Version 2)
Quarter: 2014Q1

REPORT INFORMATION
  Report Type: Spontaneous
  Country: US (occurrence: US)
  Receive Date: 20140106
  Receipt Date: 20140106
  Transmission Date: 20141002
  Serious: No
  Sender: FDA-Public Use
  Company Number: US-PFIZER INC-2013367055

PATIENT
  Age: 49 Year
  Sex: Female

DRUGS (5)
  1. ENBREL [Suspect]
     Indication: PSORIATIC ARTHROPATHY
     Dosage: 50 MG, TWICE WEEKLY
     Route: 065
     Dates: start: 20130101, end: 201305
  2. ENBREL [Suspect]
     Indication: PSORIASIS
     Dosage: UNK
     Dates: start: 201308
  3. METHOTREXATE SODIUM [Suspect]
     Dosage: UNK
     Dates: start: 2011
  4. METHOTREXATE SODIUM [Suspect]
     Dosage: 6 TABS (2.5 MG) , WEEKLY
     Dates: start: 201308
  5. HUMIRA [Suspect]
     Dosage: UNK
     Dates: start: 201305, end: 201308

REACTIONS (8)
  - Nodule [Not Recovered/Not Resolved]
  - Inflammation [Not Recovered/Not Resolved]
  - Tenderness [Not Recovered/Not Resolved]
  - Arthralgia [Recovered/Resolved]
  - Stress [Not Recovered/Not Resolved]
  - Erythema [Not Recovered/Not Resolved]
  - Psoriasis [Not Recovered/Not Resolved]
  - Off label use [Unknown]
